FAERS Safety Report 9623987 (Version 1)
Quarter: 2013Q4

REPORT INFORMATION
  Report Type: Spontaneous
  Country: SA (occurrence: None)
  Receive Date: 20131010
  Receipt Date: 20131010
  Transmission Date: 20140711
  Serious: Yes (Other)
  Sender: FDA-Public Use
  Company Number: VAL_02754_2013

PATIENT
  Age: 39 Year
  Sex: Female

DRUGS (1)
  1. CARBAMAZEPINE [Suspect]
     Indication: TEMPORAL LOBE EPILEPSY
     Dosage: DF

REACTIONS (1)
  - Encephalopathy [None]
